FAERS Safety Report 17711617 (Version 2)
Quarter: 2020Q4

REPORT INFORMATION
  Report Type: Spontaneous
  Country: CA (occurrence: CA)
  Receive Date: 20200427
  Receipt Date: 20201013
  Transmission Date: 20210113
  Serious: Yes (Other)
  Sender: FDA-Public Use
  Company Number: CA-PFIZER INC-2020063396

PATIENT
  Age: 46 Year
  Sex: Female

DRUGS (8)
  1. SOMAVERT [Suspect]
     Active Substance: PEGVISOMANT
     Indication: ACROMEGALY
     Dosage: 10 MG, DAILY
     Route: 058
     Dates: start: 20191031, end: 2020
  2. SANDOSTATIN LAR DEPOT [Concomitant]
     Active Substance: OCTREOTIDE ACETATE
     Dosage: 30 MG, EVERY 4 WEEKS
     Route: 065
  3. SYNTHROID [Concomitant]
     Active Substance: LEVOTHYROXINE SODIUM
     Dosage: 75 UG MONDAY TO FRIDAY
     Route: 065
  4. SOMAVERT [Suspect]
     Active Substance: PEGVISOMANT
     Dosage: 15 MG, DAILY
     Route: 058
     Dates: start: 2020, end: 2020
  5. CABERGOLINE. [Concomitant]
     Active Substance: CABERGOLINE
     Dosage: 1 MG ON THURSDAYS AND MONDAYS
     Dates: end: 2019
  6. CABERGOLINE. [Concomitant]
     Active Substance: CABERGOLINE
     Dosage: 0.5 MG, WEEKLY FOR 2 WEEKS, THEN TWICE A WEEK
     Route: 065
     Dates: start: 202004
  7. SYNTHROID [Concomitant]
     Active Substance: LEVOTHYROXINE SODIUM
     Dosage: 150 UG SATURDAYS-SUNDAYS
     Route: 065
  8. SOMAVERT [Suspect]
     Active Substance: PEGVISOMANT
     Dosage: 20 MG, DAILY
     Route: 058
     Dates: start: 2020

REACTIONS (2)
  - Drug ineffective [Unknown]
  - Neoplasm [Unknown]
